FAERS Safety Report 11612090 (Version 3)
Quarter: 2015Q4

REPORT INFORMATION
  Report Type: Spontaneous
  Country: GB (occurrence: GB)
  Receive Date: 20151008
  Receipt Date: 20151102
  Transmission Date: 20160304
  Serious: Yes (Other)
  Sender: FDA-Public Use
  Company Number: GB-GLAXOSMITHKLINE-GB2015GSK142105

PATIENT
  Sex: Female

DRUGS (1)
  1. LAMICTAL [Suspect]
     Active Substance: LAMOTRIGINE
     Indication: PRODUCT USED FOR UNKNOWN INDICATION
     Dosage: 50 MG, BID

REACTIONS (6)
  - Loss of consciousness [Unknown]
  - Fatigue [Unknown]
  - Impaired driving ability [Unknown]
  - Product quality issue [Unknown]
  - Seizure [Unknown]
  - Anxiety [Unknown]
